FAERS Safety Report 7521817-0 (Version None)
Quarter: 2011Q2

REPORT INFORMATION
  Report Type: 
  Country: None (occurrence: None)
  Receive Date: 20110603
  Receipt Date: 20110526
  Transmission Date: 20111010
  Serious: Yes (Other)
  Sender: FDA-Public Use
  Company Number: US-SHIRE-ALL1-2011-01617

PATIENT
  Sex: Male
  Weight: 117.91 kg

DRUGS (5)
  1. VYVANSE [Suspect]
     Indication: WEIGHT CONTROL
     Dosage: 50 MG, 1X/DAY:QD
     Route: 048
     Dates: start: 20090101, end: 20110301
  2. VYVANSE [Suspect]
     Dosage: 20 MG, 1X/DAY:QD
     Route: 048
     Dates: start: 20110101
  3. UNSPECIFIED BLOOD PRESSURE MEDICATION [Concomitant]
     Indication: HYPERTENSION
     Dosage: UNK, UNKNOWN
     Route: 065
  4. VYVANSE [Suspect]
     Indication: DISTURBANCE IN ATTENTION
     Dosage: 30 MG, 1X/DAY:QD
     Route: 048
     Dates: start: 20090101, end: 20090101
  5. VYVANSE [Suspect]
     Dosage: 30 MG, 1X/DAY:QD
     Route: 048
     Dates: start: 20110301, end: 20110101

REACTIONS (10)
  - MENTAL IMPAIRMENT [None]
  - INSOMNIA [None]
  - BACK PAIN [None]
  - EMOTIONAL DISTRESS [None]
  - HEADACHE [None]
  - IMPAIRED WORK ABILITY [None]
  - AGITATION [None]
  - ANGER [None]
  - SUICIDAL IDEATION [None]
  - GAIT DISTURBANCE [None]
